FAERS Safety Report 5115894-4 (Version None)
Quarter: 2006Q3

REPORT INFORMATION
  Report Type: 
  Country: None (occurrence: None)
  Receive Date: 20060927
  Receipt Date: 20060703
  Transmission Date: 20061208
  Serious: No
  Sender: FDA-Public Use
  Company Number: US-BRISTOL-MYERS SQUIBB COMPANY-13431945

PATIENT
  Age: 48 Year
  Sex: Female

DRUGS (8)
  1. ABILIFY [Suspect]
     Indication: BIPOLAR DISORDER
     Dosage: DOSE VALUE:  22 TO 23 MG
     Route: 048
  2. MECLIZINE [Concomitant]
  3. NEXIUM [Concomitant]
  4. GABAPENTIN [Concomitant]
  5. FLUOXETINE [Concomitant]
  6. TRAZODONE HCL [Concomitant]
  7. ATORVASTATIN CALCIUM [Concomitant]
  8. LORATADINE [Concomitant]

REACTIONS (2)
  - OVERDOSE [None]
  - VISION BLURRED [None]
